FAERS Safety Report 10660369 (Version 1)
Quarter: 2014Q4

REPORT INFORMATION
  Report Type: Spontaneous
  Country: US (occurrence: US)
  Receive Date: 20141217
  Receipt Date: 20141217
  Transmission Date: 20150529
  Serious: No
  Sender: FDA-Public Use
  Company Number: US-GLAXOSMITHKLINE-A1088095A

PATIENT

DRUGS (1)
  1. VOTRIENT [Suspect]
     Active Substance: PAZOPANIB HYDROCHLORIDE
     Indication: PRODUCT USED FOR UNKNOWN INDICATION
     Dosage: 200 MG TABLET UNKNOWN DOSING
     Route: 065
     Dates: start: 20140821

REACTIONS (7)
  - Asthenia [Unknown]
  - Hyperhidrosis [Unknown]
  - Stomatitis [Unknown]
  - Vomiting [Unknown]
  - Memory impairment [Unknown]
  - Nausea [Unknown]
  - Dysgeusia [Unknown]
